FAERS Safety Report 4609616-0 (Version None)
Quarter: 2005Q1

REPORT INFORMATION
  Report Type: 
  Country: None (occurrence: None)
  Receive Date: 20050314
  Receipt Date: 20050301
  Transmission Date: 20050727
  Serious: Yes (Death, Life-Threatening)
  Sender: FDA-Public Use
  Company Number: 2004032346

PATIENT
  Age: 23 Year
  Sex: Male
  Weight: 62 kg

DRUGS (6)
  1. VFEND [Suspect]
     Indication: ASPERGILLOSIS
     Dosage: 400 MG (200 MG, 2 IN 1 D), ORAL
     Route: 048
     Dates: start: 20031220, end: 20040506
  2. VFEND [Suspect]
     Indication: PROPHYLAXIS
     Dosage: 400 MG (200 MG, 2 IN 1 D), ORAL
     Route: 048
     Dates: start: 20031220, end: 20040506
  3. OMEPRAZOLE [Concomitant]
  4. BACTRIM [Concomitant]
  5. FERROUS SULFATE TAB [Concomitant]
  6. DARBEPOETIN ALFA (DARBEPOETIN ALFA) [Concomitant]

REACTIONS (12)
  - CEREBRAL FUNGAL INFECTION [None]
  - HEPATIC INFECTION [None]
  - HEPATIC NEOPLASM [None]
  - HYPOGAMMAGLOBULINAEMIA [None]
  - LUNG NEOPLASM [None]
  - LYMPHOPENIA [None]
  - MUCORMYCOSIS [None]
  - NEUTROPENIA [None]
  - PULMONARY MYCOSIS [None]
  - RENAL DISORDER [None]
  - SYSTEMIC MYCOSIS [None]
  - ZYGOMYCOSIS [None]
